FAERS Safety Report 5838544-8 (Version None)
Quarter: 2008Q3

REPORT INFORMATION
  Report Type: 
  Country: None (occurrence: None)
  Receive Date: 20080808
  Receipt Date: 20080730
  Transmission Date: 20090109
  Serious: Yes (Hospitalization)
  Sender: FDA-Public Use
  Company Number: US-ABBOTT-08P-163-0467985-00

PATIENT
  Sex: Female
  Weight: 86.714 kg

DRUGS (2)
  1. HUMIRA [Suspect]
     Indication: CROHN'S DISEASE
     Dates: start: 20060101, end: 20071101
  2. HUMIRA [Suspect]
     Dates: start: 20080701

REACTIONS (4)
  - ARTHRITIS [None]
  - DRUG INEFFECTIVE [None]
  - ILEOSTOMY [None]
  - PROCEDURAL COMPLICATION [None]
